FAERS Safety Report 17216604 (Version 1)
Quarter: 2019Q4

REPORT INFORMATION
  Report Type: Spontaneous
  Country: ES (occurrence: ES)
  Receive Date: 20191230
  Receipt Date: 20191230
  Transmission Date: 20200122
  Serious: Yes (Other)
  Sender: FDA-Public Use
  Company Number: ES-B.I. PHARMACEUTICALS,INC./RIDGEFIELD-2019-12-122444

PATIENT
  Age: 82 Year
  Sex: Female
  Weight: 86 kg

DRUGS (8)
  1. STILNOX [Concomitant]
     Active Substance: ZOLPIDEM TARTRATE
     Indication: PRODUCT USED FOR UNKNOWN INDICATION
     Dosage: 1 TABLET AT NIGHT
     Route: 065
     Dates: start: 20160203
  2. HUMAN INSULATARD [Concomitant]
     Active Substance: INSULIN HUMAN
     Indication: TYPE 2 DIABETES MELLITUS
     Dosage: 40 IU AT DINNER, 0 IU AT LUNCH, 36 IU AT BREAKFAST (76[IU]/G)
     Route: 065
     Dates: start: 20160111
  3. NOLOTIL [METAMIZOLE MAGNESIUM] [Concomitant]
     Active Substance: METAMIZOLE MAGNESIUM
     Indication: PRODUCT USED FOR UNKNOWN INDICATION
     Dosage: 1 CAPSULE EVERY 12 HOURS
     Route: 065
     Dates: start: 20190916
  4. SYNJARDY [Suspect]
     Active Substance: EMPAGLIFLOZIN\METFORMIN HYDROCHLORIDE
     Indication: DIABETES MELLITUS
     Dosage: STRENGTH -5MG/1000MG 60 , 1 TABLET EVERY 12 HOURS
     Route: 065
     Dates: start: 20181128
  5. DUPHALAC [Concomitant]
     Active Substance: LACTULOSE
     Indication: PRODUCT USED FOR UNKNOWN INDICATION
     Dosage: 15 ML IN THE MORNING
     Route: 065
     Dates: start: 20190416
  6. SIMVASTATINA [Concomitant]
     Active Substance: SIMVASTATIN
     Indication: PRODUCT USED FOR UNKNOWN INDICATION
     Dosage: 1 TABLET EVERY DAY
     Route: 065
     Dates: start: 20150623
  7. VESICARE [Concomitant]
     Active Substance: SOLIFENACIN SUCCINATE
     Indication: PRODUCT USED FOR UNKNOWN INDICATION
     Dosage: 1 TABLET EVERY DAY
     Route: 065
     Dates: start: 20190107
  8. CAPENON HCT [Concomitant]
     Active Substance: AMLODIPINE BESYLATE\HYDROCHLOROTHIAZIDE\OLMESARTAN MEDOXOMIL
     Indication: PRODUCT USED FOR UNKNOWN INDICATION
     Dosage: 1 TABLET EVERY DAY?STRENGTH: 40/10/25MG
     Route: 065
     Dates: start: 20161005

REACTIONS (1)
  - Vaginal ulceration [Not Recovered/Not Resolved]

NARRATIVE: CASE EVENT DATE: 20191107
